FAERS Safety Report 17199634 (Version 4)
Quarter: 2020Q1

REPORT INFORMATION
  Report Type: Spontaneous
  Country: GB (occurrence: GB)
  Receive Date: 20191226
  Receipt Date: 20200215
  Transmission Date: 20200409
  Serious: Yes (Other)
  Sender: FDA-Public Use
  Company Number: GB-AUROBINDO-AUR-APL-2019-107537

PATIENT
  Age: 76 Year
  Sex: Male

DRUGS (6)
  1. NOVOMIX [Concomitant]
     Active Substance: INSULIN ASPART
     Indication: PRODUCT USED FOR UNKNOWN INDICATION
     Dosage: 13 INTERNATIONAL UNIT, TWO TIMES A DAY (26 IU ONCE A DAY)
     Route: 065
  2. GLICLAZIDE [Concomitant]
     Active Substance: GLICLAZIDE
     Dosage: 90 MILLIGRAM, ONCE A DAY
     Route: 065
  3. GLICLAZIDE [Concomitant]
     Active Substance: GLICLAZIDE
     Indication: HYPERGLYCAEMIA
     Dosage: 120 MILLIGRAM
     Route: 065
  4. GLICLAZIDE [Concomitant]
     Active Substance: GLICLAZIDE
     Dosage: 60 MILLIGRAM, ONCE A DAY
     Route: 065
  5. SANDOSTATIN LAR DEPOT [Suspect]
     Active Substance: OCTREOTIDE ACETATE
     Indication: NEUROENDOCRINE TUMOUR
     Dosage: 30 MILLIGRAM, EVERY MONTH (30 MG, QMO (EVERY 4 WEEKS))
     Route: 030
  6. METFORMIN [Suspect]
     Active Substance: METFORMIN HYDROCHLORIDE
     Indication: PRODUCT USED FOR UNKNOWN INDICATION
     Dosage: 500 MILLIGRAM (2 X 500MG)
     Route: 065

REACTIONS (24)
  - Neck pain [Not Recovered/Not Resolved]
  - Concomitant disease aggravated [Unknown]
  - Embolism [Unknown]
  - Bursitis [Unknown]
  - Anger [Unknown]
  - Nausea [Recovered/Resolved]
  - Oral mucosal eruption [Unknown]
  - Pain [Unknown]
  - Rhinorrhoea [Unknown]
  - Sensory loss [Unknown]
  - Pain in extremity [Not Recovered/Not Resolved]
  - Diarrhoea [Unknown]
  - Nasopharyngitis [Unknown]
  - Abdominal pain [Unknown]
  - Deafness unilateral [Unknown]
  - Nerve compression [Unknown]
  - Steatorrhoea [Unknown]
  - Blood glucose fluctuation [Unknown]
  - Synovial cyst [Unknown]
  - Depressed mood [Unknown]
  - Oropharyngeal pain [Unknown]
  - Neuralgia [Unknown]
  - Rhinitis [Not Recovered/Not Resolved]
  - Intervertebral disc protrusion [Unknown]

NARRATIVE: CASE EVENT DATE: 201907
